FAERS Safety Report 19729769 (Version 1)
Quarter: 2021Q3

REPORT INFORMATION
  Report Type: Spontaneous
  Country: US (occurrence: US)
  Receive Date: 20210820
  Receipt Date: 20210820
  Transmission Date: 20211014
  Serious: Yes (Other)
  Sender: FDA-Public Use
  Company Number: US-PFIZER INC-202101015191

PATIENT
  Age: 66 Year
  Sex: Male
  Weight: 77.11 kg

DRUGS (1)
  1. CHANTIX [Suspect]
     Active Substance: VARENICLINE TARTRATE
     Indication: SMOKING CESSATION THERAPY
     Dosage: UNK (FIRST 3 DAYS IT WAS 5 MG AND TAKE ONE A DAY, FOR THE NEXT TAKE TWO A DAY)
     Dates: start: 202107, end: 2021

REACTIONS (8)
  - Haemorrhage [Recovering/Resolving]
  - Insomnia [Recovering/Resolving]
  - Intentional product misuse [Unknown]
  - Abdominal pain upper [Recovering/Resolving]
  - Pain [Recovering/Resolving]
  - Illness [Recovering/Resolving]
  - Bowel movement irregularity [Recovering/Resolving]
  - Recalled product administered [Unknown]

NARRATIVE: CASE EVENT DATE: 202107
